FAERS Safety Report 21405831 (Version 1)
Quarter: 2022Q4

REPORT INFORMATION
  Report Type: Spontaneous
  Country: US (occurrence: US)
  Receive Date: 20221004
  Receipt Date: 20221004
  Transmission Date: 20230113
  Serious: No
  Sender: FDA-Public Use
  Company Number: US-BION-010087

PATIENT
  Sex: Female

DRUGS (1)
  1. IMODIUM A-D [Suspect]
     Active Substance: LOPERAMIDE HYDROCHLORIDE
     Indication: Diarrhoea
     Dosage: ONCE, TOOK 2 SOFTGELS
     Dates: start: 20211003

REACTIONS (3)
  - Dyspnoea [Unknown]
  - Palpitations [Unknown]
  - Product substitution issue [Unknown]
